FAERS Safety Report 12782146 (Version 1)
Quarter: 2016Q3

REPORT INFORMATION
  Report Type: Spontaneous
  Country: US (occurrence: US)
  Receive Date: 20160927
  Receipt Date: 20160927
  Transmission Date: 20161109
  Serious: No
  Sender: FDA-Public Use
  Company Number: US-ACTELION-A-NJ2016-142464

PATIENT
  Age: 78 Year
  Sex: Male

DRUGS (12)
  1. ADCIRCA [Concomitant]
     Active Substance: TADALAFIL
  2. DONEPEZIL. [Concomitant]
     Active Substance: DONEPEZIL
  3. POTASSIUM [Concomitant]
     Active Substance: POTASSIUM
  4. ESCITALOPRAM [Concomitant]
     Active Substance: ESCITALOPRAM OXALATE
  5. METHOTREXATE. [Concomitant]
     Active Substance: METHOTREXATE
  6. FISH OIL [Concomitant]
     Active Substance: FISH OIL
  7. FUROSEMIDE. [Concomitant]
     Active Substance: FUROSEMIDE
  8. AMLODIPINE [Concomitant]
     Active Substance: AMLODIPINE BESYLATE
  9. OPSUMIT [Suspect]
     Active Substance: MACITENTAN
     Indication: PULMONARY ARTERIAL HYPERTENSION
     Dosage: 10 MG, QD
     Route: 048
     Dates: start: 20151207
  10. OMEPRAZOLE. [Concomitant]
     Active Substance: OMEPRAZOLE
  11. XARELTO [Concomitant]
     Active Substance: RIVAROXABAN
  12. LISINOPRIL. [Concomitant]
     Active Substance: LISINOPRIL

REACTIONS (3)
  - Fatigue [Unknown]
  - Dyspnoea [Unknown]
  - Herpes zoster [Unknown]

NARRATIVE: CASE EVENT DATE: 20160901
